FAERS Safety Report 5281231-8 (Version None)
Quarter: 2007Q1

REPORT INFORMATION
  Report Type: 
  Country: None (occurrence: None)
  Receive Date: 20070323
  Receipt Date: 20070312
  Transmission Date: 20070707
  Serious: Yes (Other)
  Sender: FDA-Public Use
  Company Number: GXKR2007KR02460

PATIENT
  Age: 58 Year
  Sex: Female

DRUGS (6)
  1. FLUCONAZOLE [Suspect]
     Indication: TINEA PEDIS
     Dosage: 150 MG, QW
  2. AMLODIPINE [Concomitant]
  3. VALSARTAN [Concomitant]
  4. HYDROCHLOROTHIAZIDE [Concomitant]
  5. METOCLOPRAMIDE [Concomitant]
  6. LEVOSULPIRIDE (LEVOSULPIRIDE) [Concomitant]

REACTIONS (10)
  - BLOOD ALBUMIN DECREASED [None]
  - BLOOD CREATININE INCREASED [None]
  - DISEASE RECURRENCE [None]
  - DYSPEPSIA [None]
  - GENERALISED OEDEMA [None]
  - GLOMERULONEPHRITIS MEMBRANOUS [None]
  - NAUSEA [None]
  - PROTEIN URINE PRESENT [None]
  - RED BLOOD CELLS URINE POSITIVE [None]
  - WHITE BLOOD CELLS URINE POSITIVE [None]
